FAERS Safety Report 7206485-X (Version None)
Quarter: 2010Q4

REPORT INFORMATION
  Report Type: 
  Country: None (occurrence: None)
  Receive Date: 20101221
  Receipt Date: 20101025
  Transmission Date: 20110411
  Serious: Yes (Other)
  Sender: FDA-Public Use
  Company Number: 590008

PATIENT
  Sex: Female

DRUGS (8)
  1. EPIRUBICIN HYDROCHLORIDE [Suspect]
     Indication: BREAST CANCER METASTATIC
     Dosage: 97 MG MILLIGRAM(S), 3 WEEK;
     Dates: start: 20060711, end: 20061026
  2. FLUOROURACIL [Suspect]
     Indication: BREAST CANCER METASTATIC
     Dosage: 978 MG MILLIGRAM(S), 3 WEEK;
     Dates: start: 20060711, end: 20061026
  3. CYCLOPHOSPHAMIDE [Suspect]
     Indication: BREAST CANCER METASTATIC
     Dosage: 978 MG MILLIGRAM(S), 3 WEEK;
     Dates: start: 20060711, end: 20061026
  4. ZOFRAN [Concomitant]
  5. PREDNISOLONE [Concomitant]
  6. VOGALENE [Concomitant]
  7. ANALGESIC [Concomitant]
  8. UNSPECIFIED HERBAL [Concomitant]

REACTIONS (10)
  - APHASIA [None]
  - BILE DUCT OBSTRUCTION [None]
  - CHOLELITHIASIS [None]
  - COGNITIVE DISORDER [None]
  - DISEASE RECURRENCE [None]
  - DISORIENTATION [None]
  - DISTURBANCE IN ATTENTION [None]
  - HEADACHE [None]
  - MEMORY IMPAIRMENT [None]
  - PAIN [None]
